FAERS Safety Report 7419375-4 (Version None)
Quarter: 2011Q2

REPORT INFORMATION
  Report Type: 
  Country: None (occurrence: None)
  Receive Date: 20110415
  Receipt Date: 20110411
  Transmission Date: 20111010
  Serious: Yes (Other)
  Sender: FDA-Public Use
  Company Number: US-RB-025594-11

PATIENT
  Age: 31 Year
  Sex: Male

DRUGS (4)
  1. XANAX [Suspect]
     Route: 065
     Dates: start: 20100101, end: 20110301
  2. SUBOXONE [Suspect]
     Dosage: SUBLINGUAL FILM
     Route: 060
     Dates: start: 20100101, end: 20100101
  3. SUBOXONE [Suspect]
     Indication: DRUG DEPENDENCE
     Dosage: SUBLINGUAL FILM
     Route: 060
     Dates: start: 20100101, end: 20110301
  4. XANAX [Suspect]
     Indication: ANXIETY
     Route: 065
     Dates: end: 20100101

REACTIONS (1)
  - CONVULSION [None]
